FAERS Safety Report 19610482 (Version 1)
Quarter: 2021Q3

REPORT INFORMATION
  Report Type: Spontaneous
  Country: CA (occurrence: CA)
  Receive Date: 20210726
  Receipt Date: 20210726
  Transmission Date: 20211014
  Serious: Yes (Hospitalization)
  Sender: FDA-Public Use
  Company Number: CA-ALLERGAN-2126612US

PATIENT
  Sex: Female

DRUGS (1)
  1. ESCITALOPRAM OXALATE ? BP [Suspect]
     Active Substance: ESCITALOPRAM OXALATE
     Indication: PRODUCT USED FOR UNKNOWN INDICATION
     Dosage: UNDERDOSE: 15 MICROGRAM OF ESCITALOPRAM
     Route: 048

REACTIONS (4)
  - Confusional state [Unknown]
  - Hyponatraemia [Unknown]
  - Underdose [Unknown]
  - Wrong technique in product usage process [Unknown]
